FAERS Safety Report 23883650 (Version 1)
Quarter: 2024Q2

REPORT INFORMATION
  Report Type: Spontaneous
  Country: US (occurrence: US)
  Receive Date: 20240522
  Receipt Date: 20240522
  Transmission Date: 20240716
  Serious: No
  Sender: FDA-Public Use
  Company Number: US-SANOFI-02051576

PATIENT

DRUGS (1)
  1. NEXVIAZYME [Suspect]
     Active Substance: AVALGLUCOSIDASE ALFA-NGPT
     Dosage: 800 MG, QW

REACTIONS (1)
  - Off label use [Unknown]
